FAERS Safety Report 5607134-4 (Version None)
Quarter: 2008Q1

REPORT INFORMATION
  Report Type: 
  Country: None (occurrence: None)
  Receive Date: 20080129
  Receipt Date: 20080115
  Transmission Date: 20080703
  Serious: Yes (Hospitalization)
  Sender: FDA-Public Use
  Company Number: DE-BAUSCH-2008BL000174

PATIENT
  Age: 21 Year
  Sex: Female
  Weight: 62 kg

DRUGS (1)
  1. ZYKLOLAT EDO AUGENTROPFEN [Suspect]
     Indication: DRUG ABUSER
     Route: 047
     Dates: start: 20041001

REACTIONS (4)
  - CIRCULATORY COLLAPSE [None]
  - DRUG ABUSER [None]
  - MUNCHAUSEN'S SYNDROME [None]
  - PUPILLARY LIGHT REFLEX TESTS ABNORMAL [None]
